FAERS Safety Report 5573370-9 (Version None)
Quarter: 2007Q4

REPORT INFORMATION
  Report Type: 
  Country: None (occurrence: None)
  Receive Date: 20071220
  Receipt Date: 20071220
  Transmission Date: 20080405
  Serious: No
  Sender: FDA-Public Use
  Company Number: None

PATIENT
  Age: 40 Year
  Sex: Male
  Weight: 53.0709 kg

DRUGS (3)
  1. OXYCODONE HCL EXTENDED-RELEASE [Suspect]
     Indication: BRACHIAL PLEXUS INJURY
     Dosage: 80MG - 2 PO QAM AND 1 PO QPM
     Route: 048
  2. OXYCODONE HCL EXTENDED-RELEASE [Suspect]
     Indication: COMPLEX REGIONAL PAIN SYNDROME
     Dosage: 80MG - 2 PO QAM AND 1 PO QPM
     Route: 048
  3. CYMBALTA [Concomitant]

REACTIONS (3)
  - NAUSEA [None]
  - PRURITUS [None]
  - VOMITING [None]
